FAERS Safety Report 19568108 (Version 4)
Quarter: 2022Q3

REPORT INFORMATION
  Report Type: Spontaneous
  Country: CZ (occurrence: CZ)
  Receive Date: 20210716
  Receipt Date: 20220913
  Transmission Date: 20221026
  Serious: Yes (Other)
  Sender: FDA-Public Use
  Company Number: CZ-MYLANLABS-2021M1041858

PATIENT
  Age: 40 Year
  Sex: Male

DRUGS (11)
  1. MOXONIDINE [Suspect]
     Active Substance: MOXONIDINE
     Indication: Hypertension
     Dosage: 0.4 MILLIGRAM DAILY; 0.4 MG IN THE MORNING
     Route: 048
  2. MOXONIDINE [Suspect]
     Active Substance: MOXONIDINE
     Indication: Cardiovascular disorder
     Dosage: 1 DOSAGE FORM, QD, AM (0.4 MG IN THE MORNING)
     Route: 065
  3. METOPROLOL [Suspect]
     Active Substance: METOPROLOL
     Indication: Hypertension
     Dosage: 25 MILLIGRAM, QD
     Route: 065
  4. METOPROLOL [Suspect]
     Active Substance: METOPROLOL
     Indication: Cardiovascular disorder
     Dosage: 2 DOSAGE FORM (25 MG IN THE MORNING AND EVENING)
     Route: 065
  5. METOPROLOL [Suspect]
     Active Substance: METOPROLOL
     Dosage: 50 MILLIGRAM, QD
     Route: 048
  6. SIMVASTATIN [Suspect]
     Active Substance: SIMVASTATIN
     Indication: Dyslipidaemia
     Dosage: 20 MILLIGRAM DAILY; 20 MG IN THE EVENING
     Route: 048
  7. SIMVASTATIN [Suspect]
     Active Substance: SIMVASTATIN
     Indication: Cardiovascular disorder
     Dosage: 1 DOSAGE FORM, QD, PM (20 MG IN THE EVENING )
     Route: 065
  8. MOXONIDINE [Concomitant]
     Active Substance: MOXONIDINE
     Dosage: UNK
     Route: 065
  9. SIMVASTATIN [Concomitant]
     Active Substance: SIMVASTATIN
     Dosage: UNK
     Route: 065
  10. METOPROLOL [Concomitant]
     Active Substance: METOPROLOL
     Indication: Product used for unknown indication
     Dosage: 50 MILLIGRAM, QD (50 MILLIGRAM DAILY)
     Route: 065
  11. METOPROLOL [Concomitant]
     Active Substance: METOPROLOL
     Dosage: 25 MILLIGRAM, QD (50 MILLIGRAM DAILY)
     Route: 065

REACTIONS (6)
  - Quality of life decreased [Recovering/Resolving]
  - Sinus bradycardia [Recovered/Resolved]
  - Drug ineffective [Unknown]
  - Performance status decreased [Recovered/Resolved]
  - Asthenia [Recovered/Resolved]
  - Dizziness [Recovered/Resolved]
